FAERS Safety Report 5892465-3 (Version None)
Quarter: 2008Q3

REPORT INFORMATION
  Report Type: 
  Country: None (occurrence: None)
  Receive Date: 20080923
  Receipt Date: 20080916
  Transmission Date: 20090109
  Serious: Yes (Other)
  Sender: FDA-Public Use
  Company Number: US-JNJFOC-20080902934

PATIENT
  Sex: Male

DRUGS (1)
  1. TRETINOIN [Suspect]
     Indication: ACNE

REACTIONS (1)
  - THERMAL BURN [None]
